FAERS Safety Report 7742970-X (Version None)
Quarter: 2011Q3

REPORT INFORMATION
  Report Type: 
  Country: None (occurrence: None)
  Receive Date: 20110912
  Receipt Date: 20110907
  Transmission Date: 20111222
  Serious: Yes (Death, Hospitalization, Other)
  Sender: FDA-Public Use
  Company Number: GB-ROCHE-798454

PATIENT
  Age: 30 Year
  Sex: Male

DRUGS (3)
  1. PREDNISOLONE [Suspect]
     Route: 048
  2. TACROLIMUS [Suspect]
     Indication: RENAL TRANSPLANT
     Dosage: DOSE REDUCED
     Route: 065
  3. MYCOPHENOLATE MOFETIL [Suspect]
     Indication: RENAL TRANSPLANT
     Dosage: DOSE REDUCED
     Route: 065

REACTIONS (3)
  - ACUTE HEPATIC FAILURE [None]
  - HERPES ZOSTER DISSEMINATED [None]
  - HERPES SIMPLEX HEPATITIS [None]
